FAERS Safety Report 6078511-5 (Version None)
Quarter: 2009Q1

REPORT INFORMATION
  Report Type: 
  Country: None (occurrence: None)
  Receive Date: 20090211
  Receipt Date: 20090211
  Transmission Date: 20090719
  Serious: Yes (Other)
  Sender: FDA-Public Use
  Company Number: None

PATIENT
  Age: 75 Year
  Sex: Female
  Weight: 55.7 kg

DRUGS (2)
  1. LEVOFLOXACIN [Suspect]
     Indication: INFECTION
     Dosage: 750 MG X 1 DOSE IV
     Route: 042
     Dates: start: 20090131, end: 20090201
  2. DORIPENEM 500 MG [Suspect]
     Indication: INFECTION
     Dosage: 500 THEN DECREASE TO 250 MG Q8 HOURS IV
     Route: 042
     Dates: start: 20090131, end: 20090202

REACTIONS (3)
  - CONVULSION [None]
  - GAZE PALSY [None]
  - TREMOR [None]
